FAERS Safety Report 10016657 (Version 1)
Quarter: 2014Q1

REPORT INFORMATION
  Report Type: Report from Study
  Country: US (occurrence: US)
  Receive Date: 20140317
  Receipt Date: 20140317
  Transmission Date: 20141002
  Serious: Yes (Hospitalization)
  Sender: FDA-Public Use
  Company Number: US-GILEAD-2014-0096344

PATIENT
  Age: 25 Year
  Sex: Female

DRUGS (18)
  1. AZTREONAM LYSINE [Suspect]
     Indication: PRODUCT USED FOR UNKNOWN INDICATION
     Dosage: UNK
     Route: 055
     Dates: end: 20140221
  2. KB001A VS PLACEBO [Suspect]
     Indication: PSEUDOMONAS INFECTION
     Dosage: UNK
     Route: 065
     Dates: start: 20131227, end: 20140221
  3. PULMOZYME [Suspect]
     Indication: PRODUCT USED FOR UNKNOWN INDICATION
     Dosage: UNK
     Route: 065
     Dates: end: 20140221
  4. CHOLECALCIFEROL [Concomitant]
  5. SYMBICORT [Concomitant]
  6. MARINOL                            /00003301/ [Concomitant]
  7. MEPHYTON [Concomitant]
  8. HYPERTONIC SALINE SOLUTION [Concomitant]
  9. CALCIUM CARBONATE [Concomitant]
  10. SELENIUM [Concomitant]
  11. CREON 25000 [Concomitant]
  12. PROBIOTICS [Concomitant]
  13. AQUADEKS                           /07679501/ [Concomitant]
  14. ALBUTEROL                          /00139501/ [Concomitant]
  15. TAMIFLU [Concomitant]
  16. ACETAMINOPHEN [Concomitant]
  17. LEVAQUIN [Concomitant]
     Dosage: UNK
     Dates: start: 20140104, end: 20140118
  18. LEVAQUIN [Concomitant]
     Dosage: UNK
     Dates: start: 20140121, end: 20140128

REACTIONS (1)
  - Haemoptysis [Not Recovered/Not Resolved]
